FAERS Safety Report 7366302-4 (Version None)
Quarter: 2011Q1

REPORT INFORMATION
  Report Type: 
  Country: None (occurrence: None)
  Receive Date: 20110225
  Receipt Date: 20101117
  Transmission Date: 20110831
  Serious: Yes (Other)
  Sender: FDA-Public Use
  Company Number: 318661

PATIENT
  Age: 55 Year
  Sex: Male
  Weight: 131.5 kg

DRUGS (4)
  1. LISINOPRIL [Concomitant]
  2. ASPIRIN [Concomitant]
  3. VICTOZA [Suspect]
     Indication: GLUCOSE TOLERANCE IMPAIRED
     Dosage: SUBCUTANEOUS
     Route: 058
     Dates: start: 20100101, end: 20101106
  4. HYDROCHLOROTHIAZIDE [Concomitant]

REACTIONS (1)
  - PANCREATITIS [None]
